FAERS Safety Report 22600204 (Version 1)
Quarter: 2023Q2

REPORT INFORMATION
  Report Type: Spontaneous
  Country: TR (occurrence: TR)
  Receive Date: 20230614
  Receipt Date: 20230614
  Transmission Date: 20230721
  Serious: Yes (Hospitalization, Other)
  Sender: FDA-Public Use
  Company Number: TR-BAYER-2023A081673

PATIENT
  Age: 23 Year
  Sex: Female
  Weight: 57 kg

DRUGS (1)
  1. YASMIN [Suspect]
     Active Substance: DROSPIRENONE\ETHINYL ESTRADIOL
     Indication: Menstrual cycle management
     Dosage: UNK
     Route: 048
     Dates: start: 202208, end: 20221108

REACTIONS (7)
  - Syncope [None]
  - Fall [None]
  - Aphasia [None]
  - Pain in extremity [None]
  - Peripheral swelling [None]
  - Pulmonary vein occlusion [Recovering/Resolving]
  - Vascular occlusion [None]

NARRATIVE: CASE EVENT DATE: 20221108
